FAERS Safety Report 4558859-3 (Version None)
Quarter: 2005Q1

REPORT INFORMATION
  Report Type: 
  Country: None (occurrence: None)
  Receive Date: 20050121
  Receipt Date: 20050121
  Transmission Date: 20050727
  Serious: No
  Sender: FDA-Public Use
  Company Number: None

PATIENT
  Age: 39 Year
  Sex: Female

DRUGS (1)
  1. GEODON [Suspect]
     Indication: SCHIZOPHRENIA
     Dosage: 5MG   X 1 DOSE   INTRAPERIC
     Route: 032
     Dates: start: 20041018, end: 20041018

REACTIONS (7)
  - ACCIDENTAL NEEDLE STICK [None]
  - BLISTER [None]
  - FEELING ABNORMAL [None]
  - MUSCLE RIGIDITY [None]
  - PAIN IN EXTREMITY [None]
  - SECRETION DISCHARGE [None]
  - SKIN EXFOLIATION [None]
